FAERS Safety Report 6861788-3 (Version None)
Quarter: 2010Q3

REPORT INFORMATION
  Report Type: 
  Country: None (occurrence: None)
  Receive Date: 20100721
  Receipt Date: 20100712
  Transmission Date: 20110219
  Serious: No
  Sender: FDA-Public Use
  Company Number: US-BIOGENIDEC-2010BI024226

PATIENT
  Age: 52 Year
  Sex: Female

DRUGS (1)
  1. TYSABRI [Suspect]
     Indication: MULTIPLE SCLEROSIS
     Route: 042
     Dates: start: 20060101

REACTIONS (9)
  - ANAEMIA [None]
  - CONSTIPATION [None]
  - DRUG EFFECT DECREASED [None]
  - FLUID RETENTION [None]
  - INCONTINENCE [None]
  - MEMORY IMPAIRMENT [None]
  - PAIN [None]
  - PLATELET COUNT DECREASED [None]
  - SUDDEN ONSET OF SLEEP [None]
